FAERS Safety Report 19786849 (Version 6)
Quarter: 2022Q2

REPORT INFORMATION
  Report Type: Spontaneous
  Country: BE (occurrence: BE)
  Receive Date: 20210903
  Receipt Date: 20220622
  Transmission Date: 20220721
  Serious: Yes (Death, Life-Threatening, Hospitalization, Other)
  Sender: FDA-Public Use
  Company Number: BE-CELGENE-BEL-20210304547

PATIENT
  Age: 63 Year
  Sex: Female
  Weight: 58 kg

DRUGS (14)
  1. AZACITIDINE [Suspect]
     Active Substance: AZACITIDINE
     Indication: Myelodysplastic syndrome
     Dosage: 525 MILLIGRAM/SQ. METER, Q28D (75 MILLIGRAM/SQ. METER, 28D CYCLE)
     Route: 058
     Dates: start: 20210208, end: 20210216
  2. VENETOCLAX [Suspect]
     Active Substance: VENETOCLAX
     Indication: Myelodysplastic syndrome
     Dosage: UNK
  3. ACETAMINOPHEN [Concomitant]
     Active Substance: ACETAMINOPHEN
     Indication: Headache
     Dosage: UNK
  4. ACETAMINOPHEN [Concomitant]
     Active Substance: ACETAMINOPHEN
     Indication: Pyrexia
     Dosage: UNK
     Dates: start: 202102
  5. LYRICA [Concomitant]
     Active Substance: PREGABALIN
     Indication: Paraesthesia
     Dosage: 300 MILLIGRAM, QD
     Route: 048
     Dates: start: 202102, end: 20210317
  6. LYRICA [Concomitant]
     Active Substance: PREGABALIN
     Dosage: 150 MILLIGRAM, QD
     Route: 048
     Dates: start: 20210112, end: 202102
  7. ARANESP [Concomitant]
     Active Substance: DARBEPOETIN ALFA
     Indication: Anaemia
     Dosage: 500 MICROGRAM, MONTHLY
     Route: 058
     Dates: start: 20210208, end: 20210308
  8. TRAMADOL HYDROCHLORIDE [Concomitant]
     Active Substance: TRAMADOL HYDROCHLORIDE
     Indication: Headache
     Dosage: 50 MILLIGRAM
     Route: 048
     Dates: start: 20210126, end: 20210308
  9. Temesta [Concomitant]
     Indication: Insomnia
     Dosage: 2.5 MILLIGRAM, QD
     Route: 048
     Dates: start: 20210308, end: 20210310
  10. ENOXAPARIN SODIUM [Concomitant]
     Active Substance: ENOXAPARIN SODIUM
     Indication: Thrombosis
     Dosage: 40 MILLIGRAM, QD
     Route: 058
     Dates: start: 20210309, end: 20210313
  11. IMODIUM [Concomitant]
     Active Substance: LOPERAMIDE HYDROCHLORIDE
     Indication: Diarrhoea
     Dosage: 2 MILLIGRAM, QD
     Route: 048
     Dates: start: 20210314, end: 20210314
  12. BUMETANIDE [Concomitant]
     Active Substance: BUMETANIDE
     Indication: Fluid retention
     Dosage: 6.75 MILLIGRAM
     Route: 041
     Dates: start: 20210126, end: 20210308
  13. MOVICOL [Concomitant]
     Active Substance: POLYETHYLENE GLYCOL 3350\POTASSIUM CHLORIDE\SODIUM BICARBONATE\SODIUM CHLORIDE
     Indication: Constipation
     Dosage: UNK (1 SACHET AS REQUIRED)
     Route: 048
     Dates: start: 202102, end: 20210222
  14. MOVICOL [Concomitant]
     Active Substance: POLYETHYLENE GLYCOL 3350\POTASSIUM CHLORIDE\SODIUM BICARBONATE\SODIUM CHLORIDE
     Dosage: UNK (1 DAY)
     Route: 048
     Dates: start: 20210309, end: 20210310

REACTIONS (4)
  - Multiple organ dysfunction syndrome [Fatal]
  - Joint swelling [Unknown]
  - Pneumonia [Unknown]
  - Septic shock [Unknown]

NARRATIVE: CASE EVENT DATE: 20210308
